FAERS Safety Report 7627089-0 (Version None)
Quarter: 2011Q3

REPORT INFORMATION
  Report Type: 
  Country: None (occurrence: None)
  Receive Date: 20110721
  Receipt Date: 20110629
  Transmission Date: 20111222
  Serious: No
  Sender: FDA-Public Use
  Company Number: US-B.I. PHARMACEUTICALS,INC./RIDGEFIELD-2011-BP-16670BP

PATIENT
  Sex: Male

DRUGS (9)
  1. SPIRIVA [Suspect]
     Indication: CHRONIC OBSTRUCTIVE PULMONARY DISEASE
     Dosage: 18 MCG
     Route: 055
     Dates: start: 20110618
  2. ZINC [Concomitant]
     Indication: ROUTINE HEALTH MAINTENANCE
     Route: 048
  3. ACYCLOVIR [Concomitant]
     Indication: HERPES SIMPLEX OPHTHALMIC
     Route: 048
     Dates: start: 19850101
  4. POTASSIUM GLUCONATE TAB [Concomitant]
     Indication: BLOOD POTASSIUM DECREASED
     Route: 048
  5. PREDNISOLONE [Concomitant]
     Indication: HERPES SIMPLEX OPHTHALMIC
     Dates: start: 19850101
  6. FISH OIL [Concomitant]
     Indication: ROUTINE HEALTH MAINTENANCE
     Dosage: 1200 MG
     Route: 048
  7. MAGNESIUM [Concomitant]
     Indication: ROUTINE HEALTH MAINTENANCE
     Route: 048
  8. CALCIUM CARBONATE [Concomitant]
     Indication: ROUTINE HEALTH MAINTENANCE
     Route: 048
  9. VIT D3 [Concomitant]
     Indication: ROUTINE HEALTH MAINTENANCE
     Route: 048

REACTIONS (1)
  - WEIGHT INCREASED [None]
